FAERS Safety Report 5448086-X (Version None)
Quarter: 2007Q3

REPORT INFORMATION
  Report Type: 
  Country: None (occurrence: None)
  Receive Date: 20070801
  Receipt Date: 20070322
  Transmission Date: 20080115
  Serious: No
  Sender: FDA-Public Use
  Company Number: 2007-US-000201

PATIENT
  Age: 4 Year
  Sex: Male
  Weight: 12.7 kg

DRUGS (2)
  1. INCRELEX [Suspect]
     Dosage: 5 UT, BID, SUBCUTANEOUS
     Route: 058
     Dates: start: 20070307
  2. AMOXICILLIN [Concomitant]

REACTIONS (2)
  - DRY SKIN [None]
  - ERYTHEMA [None]
